FAERS Safety Report 17436903 (Version 1)
Quarter: 2020Q1

REPORT INFORMATION
  Report Type: Spontaneous
  Country: US (occurrence: US)
  Receive Date: 20200219
  Receipt Date: 20200219
  Transmission Date: 20200409
  Serious: No
  Sender: FDA-Public Use
  Company Number: US-JNJFOC-20200146408

PATIENT
  Sex: Female
  Weight: 63.56 kg

DRUGS (1)
  1. MENS ROGAINE EXTRA STRENGTH [Suspect]
     Active Substance: MINOXIDIL
     Indication: ANDROGENETIC ALOPECIA
     Dosage: AS LABEL INSTRUCTED
     Route: 061
     Dates: end: 20200124

REACTIONS (5)
  - Off label use [Unknown]
  - Product use issue [Unknown]
  - Application site exfoliation [Recovered/Resolved]
  - Overdose [Unknown]
  - Application site pruritus [Recovered/Resolved]
